FAERS Safety Report 7339368-5 (Version None)
Quarter: 2011Q1

REPORT INFORMATION
  Report Type: 
  Country: None (occurrence: None)
  Receive Date: 20110308
  Receipt Date: 20110218
  Transmission Date: 20110831
  Serious: Yes (Other)
  Sender: FDA-Public Use
  Company Number: FR-PFIZER INC-FR-WYE-G04159909

PATIENT
  Age: 61 Year
  Sex: Male

DRUGS (12)
  1. DEXAMETHASONE [Suspect]
     Indication: ACUTE MYELOID LEUKAEMIA
     Dosage: 10 MG TOTAL DAILY
     Route: 048
     Dates: start: 20081203, end: 20081207
  2. KAYEXALATE [Concomitant]
     Dosage: UNK
     Route: 048
     Dates: start: 20081207, end: 20081207
  3. ATARAX [Concomitant]
     Dosage: UNK
     Route: 048
     Dates: start: 20081205, end: 20081205
  4. FORLAX [Suspect]
     Dosage: 3 DOSES-FOR M TOTAL DAILY
     Route: 048
     Dates: start: 20081205
  5. EMEND [Concomitant]
     Dosage: UNK
     Route: 048
     Dates: start: 20081208
  6. TAZOCILLINE [Suspect]
     Dosage: 12 G TOTAL DAILY
     Route: 042
     Dates: start: 20081203
  7. CYTARABINE [Suspect]
     Dosage: UNKNOWN
     Route: 065
  8. CYTARABINE [Suspect]
     Dosage: UNSPECIFIED HIGH DOSE
     Route: 065
  9. ZAVEDOS [Suspect]
     Indication: ACUTE MYELOID LEUKAEMIA
     Dosage: 15.9 MG TOTAL DAILY
     Route: 042
     Dates: start: 20081205, end: 20081209
  10. ZAVEDOS [Suspect]
     Dosage: UNKNOWN
     Route: 065
  11. RASBURICASE [Concomitant]
     Dosage: UNK
     Route: 042
     Dates: start: 20081203, end: 20081206
  12. CYTARABINE [Suspect]
     Indication: ACUTE MYELOID LEUKAEMIA
     Dosage: 200 MG TOTAL DAILY
     Route: 030
     Dates: start: 20081203, end: 20081208

REACTIONS (3)
  - C-REACTIVE PROTEIN INCREASED [None]
  - PANCREATITIS ACUTE [None]
  - BILIRUBIN CONJUGATED INCREASED [None]
